FAERS Safety Report 16522408 (Version 3)
Quarter: 2019Q3

REPORT INFORMATION
  Report Type: Spontaneous
  Country: US (occurrence: US)
  Receive Date: 20190703
  Receipt Date: 20190903
  Transmission Date: 20191004
  Serious: No
  Sender: FDA-Public Use
  Company Number: US-PFIZER INC-2019274000

PATIENT
  Age: 73 Year
  Sex: Male
  Weight: 85.71 kg

DRUGS (1)
  1. MORPHINE SULFATE. [Suspect]
     Active Substance: MORPHINE SULFATE
     Dosage: UNK

REACTIONS (5)
  - Drug resistance [Unknown]
  - Weight decreased [Unknown]
  - Mental disorder [Unknown]
  - Withdrawal syndrome [Unknown]
  - Drug tolerance [Unknown]
